FAERS Safety Report 6163478-1 (Version None)
Quarter: 2009Q2

REPORT INFORMATION
  Report Type: 
  Country: None (occurrence: None)
  Receive Date: 20090420
  Receipt Date: 20090320
  Transmission Date: 20091009
  Serious: Yes (Hospitalization)
  Sender: FDA-Public Use
  Company Number: PVS11-20-MAR-2009

PATIENT
  Age: 15 Year
  Sex: Male
  Weight: 39 kg

DRUGS (6)
  1. SEROMYCIN [Suspect]
     Indication: PULMONARY TUBERCULOSIS
     Dosage: 250 MG DAILY, 3/D, ORAL
     Route: 048
     Dates: start: 20070928, end: 20071112
  2. ETHIONAMIDE (ETHIONAMIDE) [Concomitant]
  3. OFLOXACIN (OFLOXACIN) [Concomitant]
  4. PYRAZINAMIDE [Concomitant]
  5. ETHAMBUTOL HCL [Concomitant]
  6. KANAMYCIN [Concomitant]

REACTIONS (3)
  - AGITATION [None]
  - CRYING [None]
  - HALLUCINATION, AUDITORY [None]
